FAERS Safety Report 5619296-3 (Version None)
Quarter: 2008Q1

REPORT INFORMATION
  Report Type: 
  Country: None (occurrence: None)
  Receive Date: 20080206
  Receipt Date: 20080125
  Transmission Date: 20080703
  Serious: Yes (Hospitalization)
  Sender: FDA-Public Use
  Company Number: 2008PV034033

PATIENT
  Age: 64 Year
  Sex: Female

DRUGS (4)
  1. SYMLIN [Suspect]
     Indication: TYPE 2 DIABETES MELLITUS
     Dosage: 120 MCG; TID; SC;  60 MCG; TID; SC
     Route: 058
     Dates: start: 20071001, end: 20071031
  2. SYMLIN [Suspect]
     Indication: TYPE 2 DIABETES MELLITUS
     Dosage: 120 MCG; TID; SC;  60 MCG; TID; SC
     Route: 058
     Dates: start: 20071031
  3. NOVOLOG [Concomitant]
  4. LANTUS [Concomitant]

REACTIONS (3)
  - DYSGEUSIA [None]
  - MYOCARDIAL INFARCTION [None]
  - NAUSEA [None]
